FAERS Safety Report 25347126 (Version 3)
Quarter: 2025Q2

REPORT INFORMATION
  Report Type: Spontaneous
  Country: US (occurrence: US)
  Receive Date: 20250522
  Receipt Date: 20250530
  Transmission Date: 20250716
  Serious: Yes (Other)
  Sender: PFIZER
  Company Number: US-PFIZER INC-202500015553

PATIENT
  Age: 23 Year
  Sex: Male

DRUGS (2)
  1. VELSIPITY [Suspect]
     Active Substance: ETRASIMOD ARGININE
     Indication: Colitis
     Dosage: 2 MG BY MOUTH DAILY
     Route: 048
  2. VELSIPITY [Suspect]
     Active Substance: ETRASIMOD ARGININE
     Indication: Colitis ulcerative

REACTIONS (9)
  - Clostridium difficile infection [Recovered/Resolved]
  - Condition aggravated [Unknown]
  - Diarrhoea [Unknown]
  - Dyspnoea [Unknown]
  - Fatigue [Unknown]
  - Headache [Unknown]
  - Back pain [Unknown]
  - Neck pain [Unknown]
  - Asthenia [Unknown]
